FAERS Safety Report 9817734 (Version 1)
Quarter: 2014Q1

REPORT INFORMATION
  Report Type: Spontaneous
  Country: US (occurrence: None)
  Receive Date: 20140110
  Receipt Date: 20140110
  Transmission Date: 20141002
  Serious: Yes (Hospitalization)
  Sender: FDA-Public Use
  Company Number: None

PATIENT
  Age: 72 Year
  Sex: Female
  Weight: 70.4 kg

DRUGS (1)
  1. CETUXIMAB (ERBITUX) (714692) [Suspect]

REACTIONS (12)
  - Nausea [None]
  - Diarrhoea [None]
  - Pyrexia [None]
  - Hypophagia [None]
  - Malaise [None]
  - Pneumonia aspiration [None]
  - Tachycardia [None]
  - Leukocytosis [None]
  - Ileus [None]
  - Pneumonia [None]
  - Escherichia urinary tract infection [None]
  - Clostridium test positive [None]
